FAERS Safety Report 6026779-3 (Version None)
Quarter: 2009Q1

REPORT INFORMATION
  Report Type: 
  Country: None (occurrence: None)
  Receive Date: 20090105
  Receipt Date: 20081225
  Transmission Date: 20090719
  Serious: Yes (Other)
  Sender: FDA-Public Use
  Company Number: JP-JNJFOC-20081206494

PATIENT
  Age: 73 Year
  Sex: Male

DRUGS (3)
  1. ITRIZOLE [Suspect]
     Indication: SINUSITIS
     Dosage: 50 MG, 4 CAPSULES,
     Route: 048
  2. AMBISOME [Suspect]
     Indication: SINUSITIS
     Route: 041
     Dates: start: 20081121, end: 20081129
  3. FUNGUARD [Concomitant]
     Indication: SINUSITIS
     Route: 041

REACTIONS (3)
  - DIARRHOEA [None]
  - RENAL IMPAIRMENT [None]
  - VISUAL ACUITY REDUCED [None]
